FAERS Safety Report 16581549 (Version 1)
Quarter: 2019Q3

REPORT INFORMATION
  Report Type: Spontaneous
  Country: US (occurrence: US)
  Receive Date: 20190716
  Receipt Date: 20190716
  Transmission Date: 20191004
  Serious: No
  Sender: FDA-Public Use
  Company Number: US-CHILTERN-US-2019-000513

PATIENT
  Age: 87 Year
  Sex: Female

DRUGS (3)
  1. RHOPRESSA [Suspect]
     Active Substance: NETARSUDIL MESYLATE
     Indication: PIGMENTARY GLAUCOMA
     Dosage: 1 GTT, QD RIGHT EYE
     Route: 047
     Dates: start: 20181003, end: 20190103
  2. LATANOPROST. [Concomitant]
     Active Substance: LATANOPROST
     Indication: PIGMENTARY GLAUCOMA
     Dosage: 1 GTT, QD RIGHT EYE
     Route: 047
     Dates: start: 20140407
  3. DORZOLAMIDE TIMOLOL [Concomitant]
     Active Substance: DORZOLAMIDE
     Indication: PIGMENTARY GLAUCOMA
     Dosage: 1 GTT, QD RIGHT EYE
     Route: 047
     Dates: start: 20141211

REACTIONS (3)
  - Conjunctivitis allergic [Recovered/Resolved]
  - Off label use [Unknown]
  - Blepharitis allergic [Recovered/Resolved]

NARRATIVE: CASE EVENT DATE: 20190103
